FAERS Safety Report 17760419 (Version 1)
Quarter: 2020Q2

REPORT INFORMATION
  Report Type: Spontaneous
  Country: US (occurrence: US)
  Receive Date: 20200508
  Receipt Date: 20200508
  Transmission Date: 20200714
  Serious: No
  Sender: FDA-Public Use
  Company Number: None

PATIENT
  Age: 63 Year
  Sex: Male

DRUGS (1)
  1. BEXAROTENE 75MG MYLAN [Suspect]
     Active Substance: BEXAROTENE
     Indication: CUTANEOUS T-CELL LYMPHOMA
     Route: 048
     Dates: start: 202004

REACTIONS (3)
  - Muscular weakness [None]
  - Muscle spasms [None]
  - Rash [None]

NARRATIVE: CASE EVENT DATE: 202004
